FAERS Safety Report 5320539-4 (Version None)
Quarter: 2007Q2

REPORT INFORMATION
  Report Type: 
  Country: None (occurrence: None)
  Receive Date: 20070509
  Receipt Date: 20070430
  Transmission Date: 20071010
  Serious: Yes (Hospitalization, Other)
  Sender: FDA-Public Use
  Company Number: US-PFIZER INC-2007035440

PATIENT
  Sex: Female
  Weight: 66.818 kg

DRUGS (7)
  1. CHANTIX [Suspect]
     Indication: SMOKING CESSATION THERAPY
     Dates: start: 20070316, end: 20070402
  2. WELLBUTRIN [Interacting]
     Indication: DEPRESSION
  3. ABILIFY [Concomitant]
  4. ZYPREXA [Concomitant]
  5. LAMICTAL [Concomitant]
  6. HALDOL [Concomitant]
  7. DIOVAN [Concomitant]
     Indication: RENAL DISORDER

REACTIONS (4)
  - DRUG INTERACTION [None]
  - EUPHORIC MOOD [None]
  - MANIA [None]
  - MEMORY IMPAIRMENT [None]
